FAERS Safety Report 12899822 (Version 3)
Quarter: 2016Q4

REPORT INFORMATION
  Report Type: Report from Study
  Country: HU (occurrence: HU)
  Receive Date: 20161101
  Receipt Date: 20161202
  Transmission Date: 20170207
  Serious: Yes (Death, Life-Threatening, Hospitalization)
  Sender: FDA-Public Use
  Company Number: HU-PFIZER INC-2016496231

PATIENT
  Age: 42 Year
  Sex: Male
  Weight: 68 kg

DRUGS (8)
  1. KALDYUM [Concomitant]
     Active Substance: POTASSIUM CHLORIDE
     Dosage: 1X1
  2. CLEXANE [Concomitant]
     Active Substance: ENOXAPARIN SODIUM
     Dosage: 1X0.6 ML
     Route: 058
  3. PANTOPRAZOL [Concomitant]
     Active Substance: PANTOPRAZOLE SODIUM
     Dosage: 2X40 MG
  4. PALBOCICLIB [Suspect]
     Active Substance: PALBOCICLIB
     Indication: GERM CELL CANCER
     Dosage: 125 MG, 1X/DAY
     Route: 048
     Dates: start: 20161019
  5. OXYCONTIN [Concomitant]
     Active Substance: OXYCODONE HYDROCHLORIDE
     Dosage: 2X50
  6. MEDROL [Concomitant]
     Active Substance: METHYLPREDNISOLONE
     Dosage: 1X16 MG
  7. SINECOD [Concomitant]
     Active Substance: BUTAMIRATE CITRATE
     Dosage: 2X1
  8. NEO FERRO FOLGAMMA [Concomitant]
     Dosage: 2X1

REACTIONS (2)
  - Death [Fatal]
  - Dyspnoea [Unknown]

NARRATIVE: CASE EVENT DATE: 20161023
